FAERS Safety Report 16139033 (Version 1)
Quarter: 2019Q2

REPORT INFORMATION
  Report Type: Spontaneous
  Country: US (occurrence: US)
  Receive Date: 20190401
  Receipt Date: 20190401
  Transmission Date: 20190711
  Serious: Yes (Hospitalization, Other)
  Sender: FDA-Public Use
  Company Number: US-ROCHE-2288898

PATIENT
  Age: 46 Year
  Sex: Male
  Weight: 79 kg

DRUGS (1)
  1. OCREVUS [Suspect]
     Active Substance: OCRELIZUMAB
     Indication: RELAPSING MULTIPLE SCLEROSIS
     Route: 065
     Dates: start: 20190313

REACTIONS (7)
  - Pyrexia [Unknown]
  - Seizure [Unknown]
  - Blood glucose increased [Unknown]
  - Leukopenia [Unknown]
  - Rash [Unknown]
  - Thrombocytopenia [Recovering/Resolving]
  - Hemiplegia [Unknown]

NARRATIVE: CASE EVENT DATE: 20190314
